FAERS Safety Report 21759291 (Version 4)
Quarter: 2023Q1

REPORT INFORMATION
  Report Type: Report from Study
  Country: US (occurrence: US)
  Receive Date: 20221221
  Receipt Date: 20230130
  Transmission Date: 20230418
  Serious: Yes (Other)
  Sender: FDA-Public Use
  Company Number: US-ABBVIE-4241348

PATIENT
  Age: 81 Year
  Sex: Female

DRUGS (5)
  1. HUMIRA [Suspect]
     Active Substance: ADALIMUMAB
     Indication: Colitis ulcerative
     Dosage: CITRATE FREE
     Route: 058
     Dates: start: 20220728
  2. HUMIRA [Suspect]
     Active Substance: ADALIMUMAB
  3. COVID-19 Vaccine [Concomitant]
     Indication: COVID-19 immunisation
     Dosage: ONE IN ONCE
     Route: 030
  4. XARELTO [Concomitant]
     Active Substance: RIVAROXABAN
     Indication: Product used for unknown indication
  5. PREDNISONE [Concomitant]
     Active Substance: PREDNISONE
     Indication: Product used for unknown indication

REACTIONS (12)
  - Macular degeneration [Not Recovered/Not Resolved]
  - Arthralgia [Not Recovered/Not Resolved]
  - Malaise [Unknown]
  - COVID-19 [Recovered/Resolved]
  - Atrial fibrillation [Recovering/Resolving]
  - Fatigue [Recovered/Resolved with Sequelae]
  - Therapeutic product effect incomplete [Unknown]
  - Dyspnoea exertional [Not Recovered/Not Resolved]
  - Insomnia [Recovered/Resolved]
  - Colon cancer [Unknown]
  - Breast cancer female [Unknown]
  - Calcinosis [Not Recovered/Not Resolved]

NARRATIVE: CASE EVENT DATE: 20221201
